FAERS Safety Report 7476487-7 (Version None)
Quarter: 2011Q2

REPORT INFORMATION
  Report Type: 
  Country: None (occurrence: None)
  Receive Date: 20110512
  Receipt Date: 20110505
  Transmission Date: 20111010
  Serious: Yes (Death)
  Sender: FDA-Public Use
  Company Number: A0926157A

PATIENT
  Age: 68 Year
  Sex: Male

DRUGS (2)
  1. NO CONCURRENT MEDICATION [Concomitant]
  2. ARZERRA [Suspect]
     Indication: CHRONIC LYMPHOCYTIC LEUKAEMIA
     Route: 042
     Dates: start: 20110415

REACTIONS (10)
  - CONFUSIONAL STATE [None]
  - LUMBAR PUNCTURE [None]
  - COMPUTERISED TOMOGRAM NORMAL [None]
  - DEATH [None]
  - PROTEIN TOTAL INCREASED [None]
  - CSF TEST [None]
  - WHITE BLOOD CELL COUNT ABNORMAL [None]
  - BLOOD PRESSURE ABNORMAL [None]
  - PYREXIA [None]
  - MENINGITIS ASEPTIC [None]
